FAERS Safety Report 5297565-7 (Version None)
Quarter: 2007Q2

REPORT INFORMATION
  Report Type: 
  Country: None (occurrence: None)
  Receive Date: 20070412
  Receipt Date: 20070412
  Transmission Date: 20071010
  Serious: Yes (Other)
  Sender: FDA-Public Use
  Company Number: None

PATIENT
  Age: 61 Year
  Sex: Female

DRUGS (1)
  1. TISSUES, NOS [Suspect]

REACTIONS (2)
  - HEPATITIS B ANTIBODY POSITIVE [None]
  - PHARMACEUTICAL PRODUCT COMPLAINT [None]
